FAERS Safety Report 7137507-2 (Version None)
Quarter: 2010Q4

REPORT INFORMATION
  Report Type: 
  Country: None (occurrence: None)
  Receive Date: 20101206
  Receipt Date: 20101121
  Transmission Date: 20110411
  Serious: No
  Sender: FDA-Public Use
  Company Number: US-B.I. PHARMACEUTICALS,INC./RIDGEFIELD-2010-BP-13092BP

PATIENT
  Age: 37 Year
  Sex: Male

DRUGS (3)
  1. ZANTAC 75 [Suspect]
     Indication: DYSPEPSIA
     Route: 048
     Dates: start: 20090101, end: 20100301
  2. TYLENOL-500 [Concomitant]
     Indication: HEADACHE
     Route: 048
  3. PEPCID [Concomitant]
     Indication: DYSPEPSIA
     Route: 048
     Dates: start: 20100301

REACTIONS (1)
  - HEART RATE IRREGULAR [None]
